FAERS Safety Report 6680337-6 (Version None)
Quarter: 2010Q2

REPORT INFORMATION
  Report Type: 
  Country: None (occurrence: None)
  Receive Date: 20100412
  Receipt Date: 20100401
  Transmission Date: 20101027
  Serious: Yes (Disabling, Other)
  Sender: FDA-Public Use
  Company Number: 2010SP001009

PATIENT
  Age: 48 Year
  Sex: Male
  Weight: 69.8 kg

DRUGS (4)
  1. LUNESTA [Suspect]
     Dosage: ;ORAL
     Route: 048
  2. XANAX [Suspect]
     Indication: ANXIETY
     Dosage: 4 MG;QD
     Dates: end: 20090101
  3. XANAX [Suspect]
     Indication: POOR QUALITY SLEEP
     Dosage: 4 MG;QD
     Dates: end: 20090101
  4. LIPITOR [Suspect]
     Indication: BLOOD CHOLESTEROL INCREASED

REACTIONS (18)
  - ACTIVITIES OF DAILY LIVING IMPAIRED [None]
  - ANXIETY [None]
  - BLOOD BILIRUBIN INCREASED [None]
  - BLOOD CHOLESTEROL INCREASED [None]
  - BLOOD CREATININE INCREASED [None]
  - DRUG DEPENDENCE [None]
  - DRUG DETOXIFICATION [None]
  - DRY MOUTH [None]
  - FEELING ABNORMAL [None]
  - GENERAL PHYSICAL CONDITION ABNORMAL [None]
  - GLOMERULAR FILTRATION RATE DECREASED [None]
  - IMPAIRED WORK ABILITY [None]
  - INSOMNIA [None]
  - MENTAL IMPAIRMENT [None]
  - MUSCLE SPASMS [None]
  - PANCREATIC ENLARGEMENT [None]
  - RENAL DISORDER [None]
  - WEIGHT DECREASED [None]
